FAERS Safety Report 14842127 (Version 3)
Quarter: 2018Q2

REPORT INFORMATION
  Report Type: Spontaneous
  Country: DE (occurrence: DE)
  Receive Date: 20180503
  Receipt Date: 20180619
  Transmission Date: 20180711
  Serious: Yes (Hospitalization)
  Sender: FDA-Public Use
  Company Number: DE-PFIZER INC-2018181171

PATIENT
  Age: 78 Year
  Sex: Male

DRUGS (9)
  1. METFORMIN [Concomitant]
     Active Substance: METFORMIN HYDROCHLORIDE
     Dosage: UNK
  2. CLOMIPRAMINE [Suspect]
     Active Substance: CLOMIPRAMINE
     Dosage: 37 MG, 2X/DAY (EVERY 12 HOURS)
     Route: 065
  3. TAMSULOSIN [Concomitant]
     Active Substance: TAMSULOSIN
     Dosage: UNK
  4. ACETYLSALICYLIC ACID [Concomitant]
     Active Substance: ASPIRIN
     Dosage: UNK
  5. BISOPROLOL FUMARATE. [Suspect]
     Active Substance: BISOPROLOL FUMARATE
     Dosage: 2.5 MG, 2X/DAY (EVERY 12 HOURS)
     Route: 065
  6. TORASEMID [Suspect]
     Active Substance: TORSEMIDE
     Dosage: 5 MG, DAILY
     Route: 048
  7. RAMIPRIL. [Suspect]
     Active Substance: RAMIPRIL
     Dosage: 5 MG, 2X/DAY
     Route: 048
  8. NITRENDIPINE [Suspect]
     Active Substance: NITRENDIPINE
     Dosage: 0.5-0-0.5-0
  9. SIMVASTATIN. [Concomitant]
     Active Substance: SIMVASTATIN
     Dosage: UNK

REACTIONS (3)
  - Syncope [Unknown]
  - Weight decreased [Unknown]
  - Dizziness [Unknown]
